FAERS Safety Report 10208169 (Version 1)
Quarter: 2014Q2

REPORT INFORMATION
  Report Type: Spontaneous
  Country: US (occurrence: US)
  Receive Date: 20140530
  Receipt Date: 20140530
  Transmission Date: 20141212
  Serious: Yes (Other)
  Sender: FDA-Public Use
  Company Number: US-ACTAVIS-2014-11688

PATIENT
  Age: 44 Year
  Sex: Female

DRUGS (1)
  1. KETOROLAC (WATSON LABORATORIES) [Suspect]
     Indication: CHRONIC RESPIRATORY DISEASE
     Dosage: INCREASING DOSES
     Route: 045

REACTIONS (5)
  - Chest discomfort [Recovered/Resolved]
  - Lacrimation increased [Recovered/Resolved]
  - Nasal congestion [Recovered/Resolved]
  - Wheezing [Recovered/Resolved]
  - Forced expiratory volume decreased [Recovered/Resolved]
